FAERS Safety Report 12156862 (Version 4)
Quarter: 2016Q2

REPORT INFORMATION
  Report Type: Spontaneous
  Country: JP (occurrence: JP)
  Receive Date: 20160307
  Receipt Date: 20160406
  Transmission Date: 20160815
  Serious: Yes (Other)
  Sender: FDA-Public Use
  Company Number: JP-009507513-1603JPN000184

PATIENT

DRUGS (1)
  1. BELSOMRA [Suspect]
     Active Substance: SUVOREXANT
     Dosage: DAILY DOSE UNKNOWN
     Route: 048
     Dates: end: 2016

REACTIONS (2)
  - Paralysis [Recovered/Resolved]
  - Paralysis [Unknown]

NARRATIVE: CASE EVENT DATE: 2016
